FAERS Safety Report 19406059 (Version 6)
Quarter: 2024Q3

REPORT INFORMATION
  Report Type: Report from Study
  Country: US (occurrence: US)
  Receive Date: 20210611
  Receipt Date: 20240827
  Transmission Date: 20241017
  Serious: Yes (Hospitalization, Other)
  Sender: ABBVIE
  Company Number: US-ABBVIE-21K-163-3937700-00

PATIENT
  Age: 77 Year
  Sex: Female
  Weight: 96 kg

DRUGS (11)
  1. SKYRIZI [Suspect]
     Active Substance: RISANKIZUMAB-RZAA
     Indication: Psoriasis
     Route: 058
     Dates: end: 202204
  2. SKYRIZI [Suspect]
     Active Substance: RISANKIZUMAB-RZAA
     Indication: Psoriasis
     Route: 058
     Dates: start: 2017
  3. MODERNA COVID-19 VACCINE [Concomitant]
     Active Substance: ELASOMERAN
     Indication: COVID-19 immunisation
     Dosage: TIME INTERVAL: 1 TOTAL: MODERNA?FIRST DOSE
     Route: 030
     Dates: start: 20210310, end: 20210310
  4. MODERNA COVID-19 VACCINE [Concomitant]
     Active Substance: ELASOMERAN
     Indication: COVID-19 immunisation
     Dosage: TIME INTERVAL: 1 TOTAL: MODERNA?SECOND DOSE
     Route: 030
     Dates: start: 20210407, end: 20210407
  5. MODERNA COVID-19 VACCINE [Concomitant]
     Active Substance: ELASOMERAN
     Indication: COVID-19 immunisation
     Dosage: TIME INTERVAL: 1 TOTAL: MODERNA?BOOSTER DOSE
     Route: 030
     Dates: start: 20211130, end: 20211130
  6. DESVENLAFAXINE [Concomitant]
     Active Substance: DESVENLAFAXINE
     Indication: Depression
     Dosage: 100 MILLIGRAM
  7. IRBESARTANA [Concomitant]
     Indication: Hypertension
     Dosage: 150 MILLIGRAM
  8. ELIQUIS [Concomitant]
     Active Substance: APIXABAN
     Indication: Anticoagulant therapy
     Dosage: 5 MILLIGRAM
  9. RISPERIDONE [Concomitant]
     Active Substance: RISPERIDONE
     Indication: Blood cholesterol
  10. METOPROLOL [Concomitant]
     Active Substance: METOPROLOL
     Indication: Cardiac disorder
     Dates: start: 20220405
  11. OCREVUS [Concomitant]
     Active Substance: OCRELIZUMAB
     Indication: Multiple sclerosis

REACTIONS (11)
  - Multiple sclerosis [Unknown]
  - Blood potassium decreased [Recovered/Resolved]
  - Balance disorder [Recovered/Resolved]
  - Fall [Recovered/Resolved]
  - Multiple fractures [Recovered/Resolved]
  - COVID-19 [Recovered/Resolved]
  - Atrial fibrillation [Unknown]
  - Eye contusion [Recovered/Resolved]
  - Stress [Not Recovered/Not Resolved]
  - Fall [Unknown]
  - Night sweats [Unknown]

NARRATIVE: CASE EVENT DATE: 20200901
